APPROVED DRUG PRODUCT: NITROFURANTOIN MACROCRYSTALLINE
Active Ingredient: NITROFURANTOIN, MACROCRYSTALLINE
Strength: 50MG
Dosage Form/Route: CAPSULE;ORAL
Application: A070248 | Product #001
Applicant: WATSON LABORATORIES INC
Approved: Jun 24, 1988 | RLD: No | RS: No | Type: DISCN